FAERS Safety Report 6823664-1 (Version None)
Quarter: 2010Q3

REPORT INFORMATION
  Report Type: 
  Country: None (occurrence: None)
  Receive Date: 20100708
  Receipt Date: 20070413
  Transmission Date: 20110219
  Serious: No
  Sender: FDA-Public Use
  Company Number: US-PFIZER INC-2006104198

PATIENT
  Sex: Female
  Weight: 83.91 kg

DRUGS (5)
  1. CHANTIX [Suspect]
     Indication: SMOKING CESSATION THERAPY
     Dosage: FREQUENCY:  BID  INTERVAL:  EVERY DAY
     Dates: start: 20060801
  2. HYDROCHLOROTHIAZIDE [Concomitant]
  3. ONE-A-DAY [Concomitant]
  4. PREVACID [Concomitant]
     Indication: GASTRIC DISORDER
  5. SULAR [Concomitant]

REACTIONS (1)
  - COUGH [None]
